FAERS Safety Report 7473090-X (Version None)
Quarter: 2011Q2

REPORT INFORMATION
  Report Type: 
  Country: None (occurrence: None)
  Receive Date: 20110511
  Receipt Date: 20110506
  Transmission Date: 20111010
  Serious: Yes (Hospitalization)
  Sender: FDA-Public Use
  Company Number: BR-ROCHE-775845

PATIENT
  Sex: Female

DRUGS (4)
  1. METICORTEN [Concomitant]
     Indication: RHEUMATOID ARTHRITIS
  2. METHOTREXATE [Concomitant]
  3. ACTEMRA [Suspect]
     Indication: RHEUMATOID ARTHRITIS
     Route: 042
  4. CHLOROQUINE [Concomitant]
     Indication: RHEUMATOID ARTHRITIS

REACTIONS (2)
  - RHEUMATOID ARTHRITIS [None]
  - DEEP VEIN THROMBOSIS [None]
